FAERS Safety Report 8204627-0 (Version None)
Quarter: 2012Q1

REPORT INFORMATION
  Report Type: 
  Country: None (occurrence: None)
  Receive Date: 20120313
  Receipt Date: 20120229
  Transmission Date: 20120608
  Serious: Yes (Other)
  Sender: FDA-Public Use
  Company Number: US-ELI_LILLY_AND_COMPANY-US201203000362

PATIENT
  Sex: Female

DRUGS (7)
  1. AVASTIN [Concomitant]
     Dosage: UNK, UNKNOWN
  2. DILANTIN [Concomitant]
  3. ALIMTA [Suspect]
     Indication: LUNG CANCER METASTATIC
     Dosage: 770 MG, EVERY 21 DAYS
     Dates: start: 20110914, end: 20120208
  4. BENADRYL [Concomitant]
     Dosage: UNK, UNKNOWN
  5. VITAMIN B-12 [Concomitant]
     Dosage: UNK, UNKNOWN
  6. FOLIC ACID [Concomitant]
     Dosage: UNK, UNKNOWN
  7. ALOXI [Concomitant]
     Dosage: UNK, UNKNOWN

REACTIONS (2)
  - CONVULSION [None]
  - DRUG LEVEL DECREASED [None]
